FAERS Safety Report 7205301-X (Version None)
Quarter: 2010Q4

REPORT INFORMATION
  Report Type: 
  Country: None (occurrence: None)
  Receive Date: 20101231
  Receipt Date: 20101223
  Transmission Date: 20110411
  Serious: No
  Sender: FDA-Public Use
  Company Number: US-BIOGENIDEC-2010BI044807

PATIENT
  Age: 29 Year
  Sex: Female

DRUGS (2)
  1. AVONEX [Suspect]
     Indication: MULTIPLE SCLEROSIS
     Route: 030
     Dates: start: 20100301
  2. ACETAMINOPHEN [Concomitant]
     Indication: PREMEDICATION

REACTIONS (4)
  - ASTHENIA [None]
  - FALL [None]
  - GAIT DISTURBANCE [None]
  - MOBILITY DECREASED [None]
